FAERS Safety Report 10343112 (Version 2)
Quarter: 2014Q3

REPORT INFORMATION
  Report Type: Spontaneous
  Country: US (occurrence: US)
  Receive Date: 20140725
  Receipt Date: 20140811
  Transmission Date: 20150326
  Serious: Yes (Hospitalization)
  Sender: FDA-Public Use
  Company Number: US-JNJFOC-20140716500

PATIENT
  Age: 85 Year
  Sex: Female
  Weight: 60 kg

DRUGS (7)
  1. BONIVA [Concomitant]
     Active Substance: IBANDRONATE SODIUM
     Route: 048
  2. IMBRUVICA [Suspect]
     Active Substance: IBRUTINIB
     Indication: MANTLE CELL LYMPHOMA
     Route: 048
     Dates: start: 20140618, end: 20140630
  3. COUMADIN [Suspect]
     Active Substance: WARFARIN SODIUM
     Indication: PRODUCT USED FOR UNKNOWN INDICATION
     Dates: end: 201407
  4. ATORVASTATIN [Concomitant]
     Active Substance: ATORVASTATIN
     Route: 048
  5. COREG [Concomitant]
     Active Substance: CARVEDILOL
  6. POTASSIUM [Concomitant]
     Active Substance: POTASSIUM
  7. IMBRUVICA [Suspect]
     Active Substance: IBRUTINIB
     Indication: MANTLE CELL LYMPHOMA
     Route: 048
     Dates: start: 20140720

REACTIONS (7)
  - Gingival bleeding [Recovered/Resolved]
  - Cardiac failure congestive [Recovered/Resolved]
  - Atrial fibrillation [Unknown]
  - Granulocytopenia [Unknown]
  - Neutropenia [Unknown]
  - Peripheral swelling [Recovered/Resolved]
  - Hypotension [Recovering/Resolving]

NARRATIVE: CASE EVENT DATE: 2014
